FAERS Safety Report 24799016 (Version 1)
Quarter: 2025Q1

REPORT INFORMATION
  Report Type: Report from Study
  Country: CA (occurrence: US)
  Receive Date: 20250102
  Receipt Date: 20250102
  Transmission Date: 20250409
  Serious: Yes (Hospitalization)
  Sender: ABBVIE
  Company Number: CA-ABBVIE-6067077

PATIENT
  Sex: Female

DRUGS (1)
  1. SKYRIZI [Suspect]
     Active Substance: RISANKIZUMAB-RZAA
     Indication: Hidradenitis
     Route: 058
     Dates: start: 20210606, end: 20241129

REACTIONS (4)
  - Hospitalisation [Unknown]
  - Yellow skin [Unknown]
  - Liver injury [Unknown]
  - Urine analysis abnormal [Unknown]
